FAERS Safety Report 7690852-4 (Version None)
Quarter: 2011Q3

REPORT INFORMATION
  Report Type: 
  Country: None (occurrence: None)
  Receive Date: 20110812
  Receipt Date: 20110801
  Transmission Date: 20111222
  Serious: Yes (Other)
  Sender: FDA-Public Use
  Company Number: FK201101489

PATIENT
  Age: 10 Year
  Sex: Male

DRUGS (7)
  1. TACROLIMUS [Concomitant]
  2. PREDNISOLONE [Concomitant]
  3. PREDNISONE [Concomitant]
  4. METHYLPREDNISOLONE [Suspect]
     Indication: PROPHYLAXIS
     Dosage: INTRAVENOUS
     Route: 042
  5. CYCLOSPORINE [Concomitant]
  6. MYCOPHENOLIC ACID [Concomitant]
  7. VALACYCLOVIR [Suspect]
     Indication: PROPHYLAXIS

REACTIONS (1)
  - EPSTEIN-BARR VIRUS ASSOCIATED LYMPHOPROLIFERATIVE DISORDER [None]
